FAERS Safety Report 10032174 (Version 2)
Quarter: 2014Q1

REPORT INFORMATION
  Report Type: Spontaneous
  Country: FR (occurrence: FR)
  Receive Date: 20140324
  Receipt Date: 20140324
  Transmission Date: 20141002
  Serious: Yes (Death, Other)
  Sender: FDA-Public Use
  Company Number: FR-ABBVIE-08P-056-0479294-00

PATIENT
  Age: 1 Day
  Sex: Female

DRUGS (2)
  1. KALETRA TABLETS [Suspect]
     Indication: MATERNAL EXPOSURE TIMING UNSPECIFIED
     Route: 064
  2. ZIDOVUDINE W/LAMIVUDINE [Suspect]
     Indication: MATERNAL EXPOSURE TIMING UNSPECIFIED
     Route: 064

REACTIONS (20)
  - Metabolic acidosis [Fatal]
  - Bradycardia foetal [Unknown]
  - Oxygen saturation decreased [Unknown]
  - Metabolic disorder [Unknown]
  - Metabolic acidosis [Unknown]
  - Pulmonary arterial hypertension [Unknown]
  - Biopsy skin [Unknown]
  - Bronchospasm [Unknown]
  - Hypothermia [Unknown]
  - Diet refusal [Unknown]
  - General physical health deterioration [Unknown]
  - Pallor [Unknown]
  - Hyperventilation [Unknown]
  - Hyperlactacidaemia [Unknown]
  - Loss of consciousness [Unknown]
  - Hypotonia [Unknown]
  - Tachypnoea [Unknown]
  - Lactic acidosis [Unknown]
  - Hepatocellular injury [Unknown]
  - Foetal exposure during pregnancy [Unknown]
